FAERS Safety Report 17160556 (Version 2)
Quarter: 2020Q1

REPORT INFORMATION
  Report Type: Report from Study
  Country: TH (occurrence: TH)
  Receive Date: 20191216
  Receipt Date: 20200303
  Transmission Date: 20200409
  Serious: Yes (Death, Hospitalization, Other)
  Sender: FDA-Public Use
  Company Number: TH-SEATTLE GENETICS-2019SGN04590

PATIENT
  Age: 24 Year
  Sex: Male

DRUGS (1)
  1. BRENTUXIMAB VEDOTIN-MPI [Suspect]
     Active Substance: BRENTUXIMAB VEDOTIN
     Indication: HODGKIN^S DISEASE
     Dosage: 100 MG, Q3WEEKS
     Route: 042
     Dates: start: 20190429, end: 20191112

REACTIONS (2)
  - Hodgkin^s disease [Fatal]
  - Gastrointestinal infection [Unknown]

NARRATIVE: CASE EVENT DATE: 20191201
